FAERS Safety Report 12423062 (Version 4)
Quarter: 2016Q4

REPORT INFORMATION
  Report Type: Spontaneous
  Country: US (occurrence: US)
  Receive Date: 20160601
  Receipt Date: 20161103
  Transmission Date: 20170207
  Serious: No
  Sender: FDA-Public Use
  Company Number: US-PFIZER INC-2016278692

PATIENT
  Age: 51 Year
  Sex: Female

DRUGS (17)
  1. LYRICA [Suspect]
     Active Substance: PREGABALIN
     Indication: POLYNEUROPATHY
  2. LYRICA [Suspect]
     Active Substance: PREGABALIN
     Indication: NEUROPATHY PERIPHERAL
     Dosage: 200 MG, 3X/DAY
     Route: 048
  3. ONGLYZA [Concomitant]
     Active Substance: SAXAGLIPTIN HYDROCHLORIDE
     Dosage: UNK
  4. CYMBALTA [Concomitant]
     Active Substance: DULOXETINE HYDROCHLORIDE
     Dosage: UNK
  5. LEVEMIR [Concomitant]
     Active Substance: INSULIN DETEMIR
     Dosage: 15 ML (CC), 2X/DAY
  6. FARXIGA [Concomitant]
     Active Substance: DAPAGLIFLOZIN PROPANEDIOL
     Dosage: UNK
  7. CRESTOR [Concomitant]
     Active Substance: ROSUVASTATIN CALCIUM
     Dosage: UNK
  8. MIRAPEX [Concomitant]
     Active Substance: PRAMIPEXOLE DIHYDROCHLORIDE
     Dosage: UNK
  9. LYRICA [Suspect]
     Active Substance: PREGABALIN
     Indication: NEURALGIA
  10. ELAVIL [Concomitant]
     Active Substance: AMITRIPTYLINE HYDROCHLORIDE
     Dosage: UNK
  11. LYRICA [Suspect]
     Active Substance: PREGABALIN
     Indication: DIABETIC NEUROPATHY
     Dosage: 100 MG, 3X/DAY
     Route: 048
  12. TRAMADOL. [Concomitant]
     Active Substance: TRAMADOL
     Dosage: UNK
  13. PRAMIPEXOLE. [Concomitant]
     Active Substance: PRAMIPEXOLE
     Indication: NEUROPATHY PERIPHERAL
     Dosage: 5 MG, UNK
  14. NOVOLOG [Concomitant]
     Active Substance: INSULIN ASPART
     Dosage: 16 ML (CC), 3X/DAY
  15. AMBIEN [Concomitant]
     Active Substance: ZOLPIDEM TARTRATE
     Dosage: 10 MG, DAILY (AT NIGHT)
  16. MIRALAX [Concomitant]
     Active Substance: POLYETHYLENE GLYCOL 3350
     Dosage: UNK
  17. OLANZAPINE. [Concomitant]
     Active Substance: OLANZAPINE
     Dosage: UNK

REACTIONS (3)
  - Drug ineffective [Unknown]
  - Dysstasia [Not Recovered/Not Resolved]
  - Drug tolerance [Unknown]
